FAERS Safety Report 20756934 (Version 1)
Quarter: 2022Q2

REPORT INFORMATION
  Report Type: Spontaneous
  Country: CN (occurrence: CN)
  Receive Date: 20220427
  Receipt Date: 20220427
  Transmission Date: 20220721
  Serious: Yes (Other)
  Sender: FDA-Public Use
  Company Number: CN-PFIZER INC-202200597674

PATIENT
  Age: 34 Year
  Sex: Female
  Weight: 67 kg

DRUGS (3)
  1. HEMABATE [Suspect]
     Active Substance: CARBOPROST TROMETHAMINE
     Indication: Uterine hypotonus
     Dosage: 250.000 UG, 1X/DAY
     Route: 015
     Dates: start: 20220404, end: 20220404
  2. CARBETOCIN [Suspect]
     Active Substance: CARBETOCIN
     Indication: Uterine hypotonus
     Dosage: 1.000 MG, 1X/DAY
     Route: 041
     Dates: start: 20220404, end: 20220404
  3. TRANEXAMIC ACID [Suspect]
     Active Substance: TRANEXAMIC ACID
     Indication: Haemorrhage prophylaxis
     Dosage: 1.0 G, 1X/DAY
     Route: 041
     Dates: start: 20220404, end: 20220404

REACTIONS (3)
  - Dysphoria [Recovered/Resolved]
  - Nausea [Recovered/Resolved]
  - Vomiting [Recovered/Resolved]

NARRATIVE: CASE EVENT DATE: 20220404
